FAERS Safety Report 7118889-4 (Version None)
Quarter: 2010Q4

REPORT INFORMATION
  Report Type: 
  Country: None (occurrence: None)
  Receive Date: 20101123
  Receipt Date: 20101117
  Transmission Date: 20110411
  Serious: No
  Sender: FDA-Public Use
  Company Number: US-PFIZER INC-US-WYE-H18261810

PATIENT
  Sex: Female

DRUGS (4)
  1. PROTONIX [Suspect]
     Indication: GASTROOESOPHAGEAL REFLUX DISEASE
     Dosage: 40 MG, 1X/DAY
     Dates: start: 20101018
  2. PREGABALIN [Concomitant]
     Indication: FIBROMYALGIA
     Dosage: 100 MG, UNK
     Dates: start: 20101019
  3. SERTRALINE [Concomitant]
     Indication: DEPRESSION
     Dosage: 100 MG, 1X/DAY
     Dates: start: 20101019
  4. ZOLPIDEM [Concomitant]
     Indication: SLEEP DISORDER
     Dosage: 10 MG, UNK

REACTIONS (1)
  - DRUG SCREEN POSITIVE [None]
